FAERS Safety Report 9556768 (Version 5)
Quarter: 2014Q1

REPORT INFORMATION
  Report Type: Spontaneous
  Country: US (occurrence: US)
  Receive Date: 20130926
  Receipt Date: 20140310
  Transmission Date: 20141002
  Serious: No
  Sender: FDA-Public Use
  Company Number: US-PFIZER INC-2013274839

PATIENT
  Age: 73 Year
  Sex: Male
  Weight: 104 kg

DRUGS (6)
  1. LYRICA [Suspect]
     Indication: NEUROPATHY PERIPHERAL
     Dosage: 100 MG, 3X/DAY
     Route: 048
     Dates: start: 201210
  2. LYRICA [Suspect]
     Dosage: UNK
  3. DOXAZOSIN [Concomitant]
     Indication: BENIGN PROSTATIC HYPERPLASIA
     Dosage: 8 MG, 1X/DAY
  4. FINASTERIDE [Concomitant]
     Indication: BENIGN PROSTATIC HYPERPLASIA
     Dosage: 5 MG, DAILY
  5. LORTAB [Concomitant]
     Dosage: 10 MG, 3X/DAY
  6. BACLOFEN [Concomitant]
     Dosage: 20 MG, 3X/DAY

REACTIONS (4)
  - Drug ineffective [Unknown]
  - Paraesthesia [Unknown]
  - Burning sensation [Unknown]
  - Product quality issue [Unknown]
